FAERS Safety Report 6193344-7 (Version None)
Quarter: 2009Q2

REPORT INFORMATION
  Report Type: 
  Country: None (occurrence: None)
  Receive Date: 20090518
  Receipt Date: 20090507
  Transmission Date: 20091009
  Serious: Yes (Other)
  Sender: FDA-Public Use
  Company Number: CN-JNJFOC-20090501853

PATIENT
  Age: 16 Month
  Sex: Female

DRUGS (3)
  1. ANTUSS INFANTS DECONGESTANT + COUGH [Suspect]
     Indication: SNEEZING
     Route: 048
  2. ANTUSS INFANTS DECONGESTANT + COUGH [Suspect]
     Indication: COUGH
     Route: 048
  3. ANTUSS INFANTS DECONGESTANT + COUGH [Suspect]
     Indication: RHINORRHOEA
     Route: 048

REACTIONS (2)
  - PYREXIA [None]
  - RASH [None]
